FAERS Safety Report 16119563 (Version 2)
Quarter: 2019Q3

REPORT INFORMATION
  Report Type: Report from Study
  Country: US (occurrence: US)
  Receive Date: 20190326
  Receipt Date: 20190930
  Transmission Date: 20191004
  Serious: Yes (Other)
  Sender: FDA-Public Use
  Company Number: US-PFIZER INC-2019088860

PATIENT
  Age: 59 Year
  Sex: Female
  Weight: 94.1 kg

DRUGS (16)
  1. BLINDED GLASDEGIB [Suspect]
     Active Substance: GLASDEGIB
     Indication: ACUTE MYELOID LEUKAEMIA
     Dosage: UNK, ONCE DAILY CONTINUOUS
     Route: 048
     Dates: start: 20190206, end: 20190215
  2. PROTONIX [Suspect]
     Active Substance: PANTOPRAZOLE SODIUM
     Indication: GASTRITIS
     Dosage: 20 MG, 2X/DAY
     Route: 048
     Dates: start: 20190215, end: 20190306
  3. COMPAZINE [Concomitant]
     Active Substance: PROCHLORPERAZINE MALEATE
     Indication: NAUSEA
     Dosage: 10 MG, 3X/DAY
     Route: 042
     Dates: start: 20190213, end: 20190214
  4. ZOFRAN [Suspect]
     Active Substance: ONDANSETRON HYDROCHLORIDE
     Indication: NAUSEA
     Dosage: 8 MG, Q8 HRS
     Route: 042
     Dates: start: 20190206, end: 20190218
  5. MYCELEX [Suspect]
     Active Substance: CLOTRIMAZOLE
     Indication: ANTIFUNGAL TREATMENT
     Dosage: 10 MG, Q8HRS
     Route: 048
     Dates: start: 20190201, end: 20190305
  6. NOXAFIL [Concomitant]
     Active Substance: POSACONAZOLE
     Indication: ANTIFUNGAL TREATMENT
     Dosage: 300 MG, 1X/DAY
     Route: 048
     Dates: start: 20190209, end: 20190305
  7. ATIVAN [Concomitant]
     Active Substance: LORAZEPAM
     Indication: VOMITING
     Dosage: 1 MG, Q4HRS PRN
     Route: 042
     Dates: start: 20190215, end: 20190216
  8. CYTARABINE. [Suspect]
     Active Substance: CYTARABINE
     Indication: ACUTE MYELOID LEUKAEMIA
     Dosage: 214 MG, DAILY BY CONTINUOUS INFUSION
     Route: 041
     Dates: start: 20190206, end: 20190213
  9. ZOVIRAX [Concomitant]
     Active Substance: ACYCLOVIR
     Indication: ANTIVIRAL TREATMENT
     Dosage: 400 MG, 2X/DAY
     Route: 048
     Dates: start: 20190201, end: 20190305
  10. TOPROL XL [Concomitant]
     Active Substance: METOPROLOL SUCCINATE
     Indication: HYPERTENSION
     Dosage: 25 MG, 1X/DAY
     Route: 048
     Dates: start: 20190201, end: 20190225
  11. TOPROL XL [Concomitant]
     Active Substance: METOPROLOL SUCCINATE
     Indication: ATRIAL FIBRILLATION
  12. DAUNORUBICIN [Suspect]
     Active Substance: DAUNORUBICIN
     Indication: ACUTE MYELOID LEUKAEMIA
     Dosage: 129 MG, DAILY CONTINUOUS INFUSION
     Route: 041
     Dates: start: 20190206, end: 20190208
  13. BLINDED PLACEBO [Suspect]
     Active Substance: INVESTIGATIONAL PRODUCT
     Indication: ACUTE MYELOID LEUKAEMIA
     Dosage: UNK, ONCE DAILY CONTINUOUS
     Route: 048
     Dates: start: 20190206, end: 20190215
  14. ISAVUCONAZONIUM SULFATE [Suspect]
     Active Substance: ISAVUCONAZONIUM SULFATE
     Dosage: UNK
  15. ZYPREXA [Suspect]
     Active Substance: OLANZAPINE
     Indication: NAUSEA
     Dosage: 5 MG, HS
     Route: 048
     Dates: start: 20190208, end: 20190213
  16. BLINDED PF-04449913 [Suspect]
     Active Substance: GLASDEGIB
     Indication: ACUTE MYELOID LEUKAEMIA
     Dosage: UNK, ONCE DAILY CONTINUOUS
     Route: 048
     Dates: start: 20190206, end: 20190215

REACTIONS (1)
  - Electrocardiogram QT prolonged [Recovered/Resolved]

NARRATIVE: CASE EVENT DATE: 20190215
